FAERS Safety Report 7429167-8 (Version None)
Quarter: 2011Q2

REPORT INFORMATION
  Report Type: 
  Country: None (occurrence: None)
  Receive Date: 20110421
  Receipt Date: 20101130
  Transmission Date: 20111010
  Serious: Yes (Other)
  Sender: FDA-Public Use
  Company Number: US-BAYER-201034570NA

PATIENT
  Age: 21 Year
  Sex: Female
  Weight: 54.422 kg

DRUGS (5)
  1. OCELLA [Suspect]
     Dosage: UNK UNK, QD
     Route: 048
     Dates: start: 20060101, end: 20090101
  2. YAZ [Suspect]
     Dosage: UNK UNK, QD
     Route: 048
     Dates: start: 20060101, end: 20090101
  3. MICRONOR [Concomitant]
     Dosage: UNK
     Dates: start: 20080901
  4. MOTRIN [Concomitant]
     Indication: PREMENSTRUAL SYNDROME
  5. MOTRIN [Concomitant]
     Indication: PAIN
     Dosage: 800 MG, PRN

REACTIONS (3)
  - NO ADVERSE EVENT [None]
  - CHOLECYSTITIS CHRONIC [None]
  - GALLBLADDER DISORDER [None]
